FAERS Safety Report 4847680-4 (Version None)
Quarter: 2005Q4

REPORT INFORMATION
  Report Type: 
  Country: None (occurrence: None)
  Receive Date: 20051205
  Receipt Date: 20050921
  Transmission Date: 20060501
  Serious: Yes (Life-Threatening, Hospitalization)
  Sender: FDA-Public Use
  Company Number: 2005-CZ-01127

PATIENT
  Age: 41 Year
  Sex: Male

DRUGS (1)
  1. PREDNISOLONE [Suspect]
     Indication: CRYPTOGENIC ORGANIZING PNEUMONIA
     Dosage: 30 MG, FOR 10 DAYS, ORAL
     Route: 048

REACTIONS (1)
  - PNEUMOTHORAX [None]
